FAERS Safety Report 6728574-6 (Version None)
Quarter: 2010Q2

REPORT INFORMATION
  Report Type: 
  Country: None (occurrence: None)
  Receive Date: 20100517
  Receipt Date: 20100506
  Transmission Date: 20101027
  Serious: Yes (Hospitalization, Other)
  Sender: FDA-Public Use
  Company Number: BE-PFIZER INC-2010058367

PATIENT
  Sex: Male

DRUGS (1)
  1. SUTENT [Suspect]
     Indication: METASTATIC RENAL CELL CARCINOMA
     Dosage: 50 MG, 1X/DAY
     Dates: start: 20100401

REACTIONS (10)
  - ANAEMIA [None]
  - DECREASED APPETITE [None]
  - DIVERTICULAR PERFORATION [None]
  - EPISTAXIS [None]
  - HAEMATOCHEZIA [None]
  - INFLAMMATION [None]
  - JAUNDICE [None]
  - NAUSEA [None]
  - PYREXIA [None]
  - THROMBOCYTOPENIA [None]
